FAERS Safety Report 9698640 (Version 1)
Quarter: 2013Q4

REPORT INFORMATION
  Report Type: Spontaneous
  Country: BR (occurrence: BR)
  Receive Date: 20131120
  Receipt Date: 20131120
  Transmission Date: 20140711
  Serious: Yes (Other)
  Sender: FDA-Public Use
  Company Number: BR-PFIZER INC-2013329345

PATIENT
  Age: 57 Year
  Sex: Female

DRUGS (3)
  1. LYRICA [Suspect]
     Indication: PAIN
     Dosage: UNSPECIFIED DOSE, 2X/DAY
     Route: 048
     Dates: start: 201208, end: 201209
  2. CELEBRA [Concomitant]
     Indication: PAIN
     Dosage: UNK, ONCE A DAY
     Dates: start: 20131101
  3. TRAMAL [Concomitant]
     Indication: PAIN
     Dosage: UNK, THREE TIMES A DAY
     Dates: start: 20131101

REACTIONS (1)
  - Spinal disorder [Unknown]
